FAERS Safety Report 23546968 (Version 1)
Quarter: 2024Q1

REPORT INFORMATION
  Report Type: Report from Study
  Country: MX (occurrence: MX)
  Receive Date: 20240221
  Receipt Date: 20240221
  Transmission Date: 20240409
  Serious: Yes (Hospitalization)
  Sender: FDA-Public Use
  Company Number: MX-AstraZeneca-2023A279364

PATIENT
  Age: 61 Day
  Sex: Male
  Weight: 6 kg

DRUGS (7)
  1. SYNAGIS [Suspect]
     Active Substance: PALIVIZUMAB
     Indication: Antiviral prophylaxis
     Dosage: 0.6 ML MONTHLY
     Route: 030
     Dates: start: 20231201, end: 20231201
  2. SYNAGIS [Suspect]
     Active Substance: PALIVIZUMAB
     Dosage: 0.8 ML MONTHLY
     Route: 030
     Dates: start: 20240105, end: 20240105
  3. SYNAGIS [Suspect]
     Active Substance: PALIVIZUMAB
     Dosage: 0.8 ML MONTHLY
     Route: 030
     Dates: start: 20240209, end: 20240209
  4. ACETAMINOPHEN [Concomitant]
     Active Substance: ACETAMINOPHEN
     Indication: Product used for unknown indication
  5. AMOXICILLIN [Concomitant]
     Active Substance: AMOXICILLIN
     Indication: Product used for unknown indication
  6. AMBROXOL [Concomitant]
     Active Substance: AMBROXOL
     Indication: Product used for unknown indication
  7. ACETYLCYSTEINE [Concomitant]
     Active Substance: ACETYLCYSTEINE
     Indication: Product used for unknown indication

REACTIONS (8)
  - Pain in extremity [Recovered/Resolved]
  - Irritability [Recovered/Resolved]
  - Emotional disorder [Recovered/Resolved]
  - Vomiting [Recovered/Resolved]
  - Diarrhoea [Recovered/Resolved]
  - Pyrexia [Not Recovered/Not Resolved]
  - Nasopharyngitis [Not Recovered/Not Resolved]
  - Illness [Not Recovered/Not Resolved]

NARRATIVE: CASE EVENT DATE: 20231201
